FAERS Safety Report 5587590-0 (Version None)
Quarter: 2008Q1

REPORT INFORMATION
  Report Type: 
  Country: None (occurrence: None)
  Receive Date: 20080110
  Receipt Date: 20080104
  Transmission Date: 20080703
  Serious: Yes (Disabling)
  Sender: FDA-Public Use
  Company Number: US-MERCK-0705USA01329

PATIENT
  Age: 49 Year
  Sex: Female

DRUGS (3)
  1. FOSAMAX [Suspect]
     Indication: RESORPTION BONE INCREASED
     Route: 048
     Dates: start: 19990101, end: 20040101
  2. FOSAMAX PLUS D [Suspect]
     Indication: RESORPTION BONE INCREASED
     Route: 048
     Dates: start: 20040101, end: 20060601
  3. PREMPRO [Concomitant]
     Route: 065
     Dates: start: 19990101, end: 20040101

REACTIONS (7)
  - ASTHENIA [None]
  - BACK PAIN [None]
  - NECK PAIN [None]
  - OSTEONECROSIS [None]
  - OSTEOPOROSIS [None]
  - PAIN IN EXTREMITY [None]
  - RESORPTION BONE INCREASED [None]
